FAERS Safety Report 8406912-6 (Version None)
Quarter: 2012Q2

REPORT INFORMATION
  Report Type: 
  Country: None (occurrence: None)
  Receive Date: 20120604
  Receipt Date: 20120531
  Transmission Date: 20120825
  Serious: Yes (Life-Threatening)
  Sender: FDA-Public Use
  Company Number: DE-BAYER-2012-050018

PATIENT
  Age: 6 Week
  Sex: Male
  Weight: 5.13 kg

DRUGS (8)
  1. ERGOCALCIFEROL [Concomitant]
     Indication: RICKETS
     Dosage: DAILY DOSE 500 IU
     Route: 048
     Dates: start: 20120401
  2. ELECTROLYTE SOLUTIONS [Concomitant]
     Indication: FLUID REPLACEMENT
     Dosage: 450 ML, ONCE
     Route: 042
     Dates: start: 20120521, end: 20120521
  3. SUFENTANIL CITRATE [Concomitant]
     Indication: ANAESTHESIA
     Dosage: DAILY DOSE 1 DF
     Route: 042
     Dates: start: 20120521, end: 20120521
  4. AMOXICILLIN [Concomitant]
     Indication: PYELONEPHRITIS
     Dosage: DAILY DOSE 50 MG
     Route: 048
     Dates: start: 20120401
  5. ROCURONIUM BROMIDE [Concomitant]
     Indication: MUSCLE RELAXANT THERAPY
     Dosage: DAILY DOSE 15 MG
     Route: 042
     Dates: start: 20120521, end: 20120521
  6. PROPOFOL [Concomitant]
     Indication: ANAESTHESIA
     Dosage: DAILY DOSE 50 MG
     Route: 042
     Dates: start: 20120521, end: 20120521
  7. GADOBUTROL [Suspect]
     Indication: NUCLEAR MAGNETIC RESONANCE IMAGING
     Dosage: 1 ML/ SEC
     Route: 042
     Dates: start: 20120521, end: 20120521
  8. SEVOFLURANE [Concomitant]
     Indication: ANAESTHESIA
     Dosage: UNK
     Route: 055
     Dates: start: 20120521, end: 20120521

REACTIONS (2)
  - PYREXIA [None]
  - RESPIRATORY FAILURE [None]
